FAERS Safety Report 9241059 (Version 1)
Quarter: 2013Q2

REPORT INFORMATION
  Report Type: Spontaneous
  Country: US (occurrence: US)
  Receive Date: 20130419
  Receipt Date: 20130419
  Transmission Date: 20140414
  Serious: No
  Sender: FDA-Public Use
  Company Number: US-009507513-1304USA007955

PATIENT
  Sex: Male

DRUGS (1)
  1. PROVENTIL [Suspect]
     Indication: ASTHMA
     Dosage: 90 MEG/ 2 PUFFS EVERY 4-6 HOURS AS NEEDED
     Route: 055
     Dates: start: 2013

REACTIONS (4)
  - Fatigue [Unknown]
  - Drug ineffective [Unknown]
  - Underdose [Unknown]
  - Product quality issue [Unknown]
